FAERS Safety Report 6880719 (Version 14)
Quarter: 2013Q4

REPORT INFORMATION
  Report Type: Spontaneous
  Country: US (occurrence: US)
  Receive Date: 20070216
  Receipt Date: 20131118
  Transmission Date: 20140711
  Serious: Yes (Hospitalization, Other)
  Sender: FDA-Public Use
  Company Number: US-BIOGENIDEC-2007BI002617

PATIENT
  Age: 61 Year
  Sex: Female
  Weight: 52 kg

DRUGS (8)
  1. AVONEX [Suspect]
     Indication: MULTIPLE SCLEROSIS
     Route: 030
     Dates: start: 20021101, end: 2003
  2. AVONEX [Suspect]
     Indication: MULTIPLE SCLEROSIS
     Route: 030
     Dates: start: 2003
  3. AMANTADINE [Concomitant]
     Indication: FATIGUE
  4. PRILOSEC [Concomitant]
     Indication: GASTROOESOPHAGEAL REFLUX DISEASE
  5. GABAPENTIN [Concomitant]
     Indication: FIBROMYALGIA
  6. FLONASE [Concomitant]
     Indication: UPPER-AIRWAY COUGH SYNDROME
  7. ATROVENT [Concomitant]
     Indication: UPPER-AIRWAY COUGH SYNDROME
  8. WELLBUTRIN [Concomitant]
     Indication: FIBROMYALGIA

REACTIONS (35)
  - Pancreatitis [Recovered/Resolved]
  - Cholelithiasis [Recovered/Resolved]
  - Abdominal pain [Recovered/Resolved]
  - Diabetes mellitus [Not Recovered/Not Resolved]
  - Neurogenic bladder [Not Recovered/Not Resolved]
  - Anaemia postoperative [Unknown]
  - Klebsiella infection [Unknown]
  - Anaemia [Recovered/Resolved]
  - Nephropathy [Not Recovered/Not Resolved]
  - Chronic obstructive pulmonary disease [Not Recovered/Not Resolved]
  - Bronchiectasis [Not Recovered/Not Resolved]
  - Pulmonary mass [Not Recovered/Not Resolved]
  - Hypertension [Not Recovered/Not Resolved]
  - Pneumonia [Recovered/Resolved]
  - Hypersomnia [Unknown]
  - Balance disorder [Not Recovered/Not Resolved]
  - Tooth infection [Recovered/Resolved]
  - Bladder disorder [Not Recovered/Not Resolved]
  - Tremor [Not Recovered/Not Resolved]
  - Weight decreased [Unknown]
  - Feeling cold [Unknown]
  - Pseudomonas infection [Not Recovered/Not Resolved]
  - Cystitis [Recovered/Resolved]
  - Multiple sclerosis [Unknown]
  - Gastroenteritis viral [Recovered/Resolved]
  - Fibromyalgia [Not Recovered/Not Resolved]
  - Memory impairment [Recovered/Resolved]
  - Chills [Unknown]
  - Dizziness [Not Recovered/Not Resolved]
  - Asthenia [Unknown]
  - Muscle spasms [Not Recovered/Not Resolved]
  - Pyrexia [Unknown]
  - Fatigue [Not Recovered/Not Resolved]
  - Insomnia [Recovered/Resolved]
  - Injection site pain [Recovered/Resolved]
